FAERS Safety Report 16436793 (Version 1)
Quarter: 2019Q2

REPORT INFORMATION
  Report Type: Spontaneous
  Country: SE (occurrence: SE)
  Receive Date: 20190614
  Receipt Date: 20190614
  Transmission Date: 20190711
  Serious: Yes (Hospitalization)
  Sender: FDA-Public Use
  Company Number: SE-TEVA-2019-SE-1062655

PATIENT
  Age: 35 Year
  Sex: Male

DRUGS (1)
  1. DIMOR [Suspect]
     Active Substance: LOPERAMIDE
     Dosage: 144 MG DURING THE DAY. UNCLEAR IF SPREAD OR ON ONE OCCASION.
     Route: 048
     Dates: start: 20190510, end: 20190510

REACTIONS (3)
  - Confusional state [Unknown]
  - Intentional overdose [Unknown]
  - Hypotension [Unknown]

NARRATIVE: CASE EVENT DATE: 20190510
